FAERS Safety Report 5082771-7 (Version None)
Quarter: 2006Q3

REPORT INFORMATION
  Report Type: 
  Country: None (occurrence: None)
  Receive Date: 20060816
  Receipt Date: 20060816
  Transmission Date: 20061208
  Serious: Yes (Hospitalization)
  Sender: FDA-Public Use
  Company Number: None

PATIENT
  Age: 74 Year
  Sex: Female
  Weight: 59.8748 kg

DRUGS (8)
  1. WARFARIN SODIUM [Suspect]
     Indication: ANTICOAGULANT THERAPY
     Dosage: SEE IMAGE
  2. LEVOFLOXACIN [Suspect]
     Indication: URINARY TRACT INFECTION
     Dosage: 500 G PO DAILY
     Route: 048
  3. SELEGILINE HCL [Concomitant]
  4. MIRAPEX [Concomitant]
  5. WARFARIN SODIUM [Concomitant]
  6. VIT B12 [Concomitant]
  7. M.V.I. [Concomitant]
  8. FOSAMAX [Concomitant]

REACTIONS (3)
  - COAGULOPATHY [None]
  - HAEMATURIA [None]
  - INTERNATIONAL NORMALISED RATIO INCREASED [None]
